FAERS Safety Report 15719883 (Version 3)
Quarter: 2019Q3

REPORT INFORMATION
  Report Type: Spontaneous
  Country: AU (occurrence: AU)
  Receive Date: 20181213
  Receipt Date: 20190715
  Transmission Date: 20191004
  Serious: Yes (Death, Other)
  Sender: FDA-Public Use
  Company Number: AU-ABBVIE-18K-008-2587230-00

PATIENT
  Age: 65 Year
  Sex: Female

DRUGS (3)
  1. ALLOPURINOL. [Suspect]
     Active Substance: ALLOPURINOL
     Indication: PROPHYLAXIS
     Route: 065
  2. VENETOCLAX. [Suspect]
     Active Substance: VENETOCLAX
     Indication: MANTLE CELL LYMPHOMA REFRACTORY
     Route: 048
  3. IBRUTINIB [Suspect]
     Active Substance: IBRUTINIB
     Indication: MANTLE CELL LYMPHOMA REFRACTORY
     Route: 065

REACTIONS (9)
  - Mantle cell lymphoma [Fatal]
  - Pyrexia [Recovered/Resolved]
  - Lymphadenopathy [Unknown]
  - Tumour lysis syndrome [Recovering/Resolving]
  - Blood uric acid increased [Unknown]
  - Confusional state [Recovered/Resolved]
  - Blood phosphorus increased [Unknown]
  - Blood calcium decreased [Unknown]
  - Drug ineffective [Unknown]
